FAERS Safety Report 7253394-6 (Version None)
Quarter: 2011Q1

REPORT INFORMATION
  Report Type: 
  Country: None (occurrence: None)
  Receive Date: 20110129
  Receipt Date: 20100225
  Transmission Date: 20110831
  Serious: Yes (Hospitalization)
  Sender: FDA-Public Use
  Company Number: US-ABBOTT-10P-163-0629451-00

PATIENT
  Sex: Female
  Weight: 65.376 kg

DRUGS (5)
  1. HUMIRA [Suspect]
     Indication: CROHN'S DISEASE
     Route: 058
     Dates: start: 20091223
  2. PREDNISONE [Concomitant]
     Indication: PRODUCT USED FOR UNKNOWN INDICATION
  3. LEXAPRO [Concomitant]
     Indication: BIPOLAR DISORDER
  4. HUMIRA [Suspect]
  5. ABILIFY [Concomitant]
     Indication: BIPOLAR DISORDER

REACTIONS (10)
  - ARTHRALGIA [None]
  - VOMITING IN PREGNANCY [None]
  - INJECTION SITE URTICARIA [None]
  - GAIT DISTURBANCE [None]
  - OEDEMA PERIPHERAL [None]
  - MALAISE [None]
  - CROHN'S DISEASE [None]
  - INJECTION SITE HAEMATOMA [None]
  - URINARY TRACT INFECTION [None]
  - INJECTION SITE PAIN [None]
